FAERS Safety Report 5631333-9 (Version None)
Quarter: 2008Q1

REPORT INFORMATION
  Report Type: 
  Country: None (occurrence: None)
  Receive Date: 20080213
  Receipt Date: 20080204
  Transmission Date: 20080703
  Serious: Yes (Death)
  Sender: FDA-Public Use
  Company Number: 2008-01035

PATIENT
  Age: 51 Year
  Sex: Male

DRUGS (10)
  1. DIPYRIDAMOLE [Suspect]
  2. FIORINAL [Suspect]
  3. FUROSEMIDE [Suspect]
  4. METOLAZONE [Suspect]
  5. SERTRALINE HYDROCHLORIDE [Suspect]
  6. VALSARTAN [Suspect]
  7. FINASTERIDE [Suspect]
  8. LEVETIRACETAM [Suspect]
  9. NITRATE, LONG-ACTING [Suspect]
  10. EZETIMIBE/SIMVASTATIN [Suspect]

REACTIONS (1)
  - DEATH [None]
